FAERS Safety Report 5257860-4 (Version None)
Quarter: 2007Q1

REPORT INFORMATION
  Report Type: 
  Country: None (occurrence: None)
  Receive Date: 20070307
  Receipt Date: 20060925
  Transmission Date: 20070707
  Serious: No
  Sender: FDA-Public Use
  Company Number: US-GLAXOSMITHKLINE-A0621291A

PATIENT
  Age: 49 Year
  Sex: Male

DRUGS (2)
  1. REQUIP [Suspect]
     Indication: PERIODIC LIMB MOVEMENT DISORDER
     Dosage: .25MG VARIABLE DOSE
     Route: 048
     Dates: start: 20060919
  2. HYZAAR [Concomitant]

REACTIONS (1)
  - INSOMNIA [None]
